FAERS Safety Report 9349296 (Version 2)
Quarter: 2013Q3

REPORT INFORMATION
  Report Type: Spontaneous
  Country: US (occurrence: US)
  Receive Date: 20130614
  Receipt Date: 20130812
  Transmission Date: 20140515
  Serious: Yes (Other)
  Sender: FDA-Public Use
  Company Number: US-PURDUE-USA-2013-0103488

PATIENT
  Sex: Female

DRUGS (3)
  1. BETADINE SURGICAL SCRUB 7.5% [Suspect]
     Indication: SURGERY
     Dosage: UNKNOWN
  2. SULFA /00150702/ [Suspect]
     Indication: PRODUCT USED FOR UNKNOWN INDICATION
  3. RADIOACTIVE DYE [Suspect]
     Indication: PRODUCT USED FOR UNKNOWN INDICATION

REACTIONS (2)
  - Anaphylactic shock [Unknown]
  - Blood pressure decreased [Unknown]
